FAERS Safety Report 5950386-1 (Version None)
Quarter: 2008Q4

REPORT INFORMATION
  Report Type: 
  Country: None (occurrence: None)
  Receive Date: 20081112
  Receipt Date: 20081106
  Transmission Date: 20090506
  Serious: Yes (Other)
  Sender: FDA-Public Use
  Company Number: PHHY2008BR27322

PATIENT
  Age: 40 Year
  Sex: Female

DRUGS (1)
  1. EXFORGE [Suspect]
     Dosage: UNK

REACTIONS (5)
  - CHILLS [None]
  - DAYDREAMING [None]
  - DIZZINESS [None]
  - MALAISE [None]
  - SYNCOPE [None]
